FAERS Safety Report 23280768 (Version 1)
Quarter: 2023Q4

REPORT INFORMATION
  Report Type: Spontaneous
  Country: US (occurrence: US)
  Receive Date: 20231211
  Receipt Date: 20231211
  Transmission Date: 20240110
  Serious: Yes (Hospitalization)
  Sender: FDA-Public Use
  Company Number: US-BIOVITRUM-2023-US-014611

PATIENT
  Age: 33 Year
  Sex: Male

DRUGS (1)
  1. KINERET [Suspect]
     Active Substance: ANAKINRA
     Indication: Gout
     Dosage: 100MG, DAILY
     Route: 058
     Dates: start: 20200506

REACTIONS (2)
  - Inappropriate schedule of product administration [Unknown]
  - Inflammation [Unknown]
